FAERS Safety Report 18924003 (Version 1)
Quarter: 2021Q1

REPORT INFORMATION
  Report Type: Spontaneous
  Country: SE (occurrence: SE)
  Receive Date: 20210222
  Receipt Date: 20210222
  Transmission Date: 20210420
  Serious: Yes (Other)
  Sender: FDA-Public Use
  Company Number: SE-MYLANLABS-2021M1010080

PATIENT
  Age: 54 Year
  Sex: Female

DRUGS (6)
  1. FLUOXETINE MYLAN 20 MG, CAPSULES [Suspect]
     Active Substance: FLUOXETINE HYDROCHLORIDE
     Indication: AGORAPHOBIA
  2. TIKACILLIN [Concomitant]
     Active Substance: PENICILLIN V POTASSIUM
     Dosage: UNK
  3. FLUOXETINE RATIOPHARM [Concomitant]
     Dosage: UNK, QD
  4. FLUOXETINE MYLAN 20 MG, CAPSULES [Suspect]
     Active Substance: FLUOXETINE HYDROCHLORIDE
     Indication: DEPRESSION
     Dosage: UNK
     Dates: start: 20210214
  5. FLUOXETINE MYLAN 20 MG, CAPSULES [Suspect]
     Active Substance: FLUOXETINE HYDROCHLORIDE
     Indication: PANIC DISORDER
  6. FLUOXETINE MYLAN 20 MG, CAPSULES [Suspect]
     Active Substance: FLUOXETINE HYDROCHLORIDE
     Indication: ANXIETY

REACTIONS (12)
  - Pain [Unknown]
  - Fear of death [Unknown]
  - Panic disorder [Unknown]
  - Dysstasia [Unknown]
  - Palpitations [Unknown]
  - Tremor [Unknown]
  - Hypoaesthesia [Unknown]
  - Depression [Unknown]
  - Feeling hot [Unknown]
  - Paraesthesia [Unknown]
  - Suicidal ideation [Unknown]
  - Drug withdrawal syndrome [Unknown]
